FAERS Safety Report 5568880-4 (Version None)
Quarter: 2007Q4

REPORT INFORMATION
  Report Type: 
  Country: None (occurrence: None)
  Receive Date: 20071220
  Receipt Date: 20070226
  Transmission Date: 20080405
  Serious: No
  Sender: FDA-Public Use
  Company Number: A0640951A

PATIENT
  Age: 61 Year
  Sex: Male

DRUGS (6)
  1. AVODART [Suspect]
     Indication: BENIGN PROSTATIC HYPERPLASIA
     Dosage: .5MG PER DAY
     Route: 048
     Dates: start: 20050101
  2. FLOMAX [Concomitant]
  3. ATACAND [Concomitant]
  4. BYETTA [Concomitant]
  5. PREVACID [Concomitant]
  6. TIAZAC [Concomitant]

REACTIONS (2)
  - BLOOD GLUCOSE INCREASED [None]
  - DRUG INEFFECTIVE [None]
